FAERS Safety Report 15975405 (Version 3)
Quarter: 2019Q1

REPORT INFORMATION
  Report Type: Spontaneous
  Country: RS (occurrence: RS)
  Receive Date: 20190218
  Receipt Date: 20190325
  Transmission Date: 20190418
  Serious: Yes (Life-Threatening)
  Sender: FDA-Public Use
  Company Number: RS-ELI_LILLY_AND_COMPANY-RS201902007328

PATIENT
  Sex: Male

DRUGS (5)
  1. CDDP [Concomitant]
     Active Substance: CISPLATIN
     Indication: LARYNGEAL CANCER METASTATIC
     Dosage: UNK, UNKNOWN
     Route: 065
     Dates: end: 201606
  2. ERBITUX [Suspect]
     Active Substance: CETUXIMAB
     Indication: LARYNGEAL CANCER METASTATIC
     Dosage: 4000 MG/M2
     Route: 065
     Dates: start: 201612
  3. ERBITUX [Suspect]
     Active Substance: CETUXIMAB
     Dosage: 250 MG/M2
     Route: 065
  4. 5 FU [Concomitant]
     Active Substance: FLUOROURACIL
     Indication: LARYNGEAL CANCER METASTATIC
     Dosage: UNK, UNKNOWN
     Route: 065
     Dates: start: 2016
  5. CDDP [Concomitant]
     Active Substance: CISPLATIN
     Dosage: UNK, UNKNOWN
     Route: 065
     Dates: start: 201612

REACTIONS (1)
  - Ventricular fibrillation [Recovered/Resolved]

NARRATIVE: CASE EVENT DATE: 201705
